FAERS Safety Report 5693471-4 (Version None)
Quarter: 2008Q2

REPORT INFORMATION
  Report Type: 
  Country: None (occurrence: None)
  Receive Date: 20080402
  Receipt Date: 20080402
  Transmission Date: 20081010
  Serious: Yes (Hospitalization)
  Sender: FDA-Public Use
  Company Number: None

PATIENT
  Age: 35 Year
  Sex: Female
  Weight: 60 kg

DRUGS (8)
  1. LAMOTRIGINE [Suspect]
     Indication: BIPOLAR DISORDER
     Dosage: 400 MG DAILY PO
     Route: 048
  2. AZITHROMYCIN [Concomitant]
  3. CITALOPRAM HYDROBROMIDE [Concomitant]
  4. CLONAZEPAM [Concomitant]
  5. INSULIN GLARGINE [Concomitant]
  6. SLIDING SCALE INSULIN [Concomitant]
  7. LEVOTHYROXINE SODIUM [Concomitant]
  8. QUETIAPINE FUMARATE [Concomitant]

REACTIONS (8)
  - ATAXIA [None]
  - CONDITION AGGRAVATED [None]
  - DEPRESSION [None]
  - DIPLOPIA [None]
  - DIZZINESS [None]
  - DRUG TOXICITY [None]
  - NAUSEA [None]
  - VOMITING [None]
